FAERS Safety Report 16713535 (Version 2)
Quarter: 2019Q3

REPORT INFORMATION
  Report Type: Spontaneous
  Country: US (occurrence: US)
  Receive Date: 20190819
  Receipt Date: 20190906
  Transmission Date: 20191004
  Serious: Yes (Hospitalization)
  Sender: FDA-Public Use
  Company Number: US-AMGEN-USASP2019130398

PATIENT
  Age: 65 Year
  Sex: Female

DRUGS (5)
  1. GABAPENTIN. [Concomitant]
     Active Substance: GABAPENTIN
     Dosage: UNK
     Dates: start: 20190123
  2. MARIJUANA [Concomitant]
     Active Substance: CANNABIS SATIVA SUBSP. INDICA TOP
     Dosage: UNK
     Dates: start: 20190123
  3. MOTRIN [Concomitant]
     Active Substance: IBUPROFEN
     Dosage: UNK, AS NECESSARY
     Dates: start: 20190123
  4. NEULASTA [Suspect]
     Active Substance: PEGFILGRASTIM
     Indication: NEUTROPENIA
     Dosage: UNK
     Route: 065
     Dates: start: 2019
  5. MORPHINE [Concomitant]
     Active Substance: MORPHINE
     Dosage: 30 MILLIGRAM, BID
     Dates: start: 20190123

REACTIONS (4)
  - Wrong technique in product usage process [Unknown]
  - Blood potassium decreased [Unknown]
  - Product dose omission [Unknown]
  - Vomiting [Unknown]

NARRATIVE: CASE EVENT DATE: 201908
